FAERS Safety Report 22310101 (Version 1)
Quarter: 2023Q2

REPORT INFORMATION
  Report Type: Spontaneous
  Country: FR (occurrence: FR)
  Receive Date: 20230511
  Receipt Date: 20230511
  Transmission Date: 20230721
  Serious: Yes (Hospitalization)
  Sender: FDA-Public Use
  Company Number: None

PATIENT
  Age: 28 Year
  Sex: Female

DRUGS (2)
  1. TRAMADOL HYDROCHLORIDE [Suspect]
     Active Substance: TRAMADOL HYDROCHLORIDE
     Indication: Product used for unknown indication
     Dosage: UP TO 2000 MG/D  , CHLORHYDRATE DE TRAMADOL
     Dates: start: 2020
  2. CANNABIS SATIVA SUBSP. INDICA TOP [Concomitant]
     Active Substance: CANNABIS SATIVA SUBSP. INDICA TOP
     Indication: Product used for unknown indication
     Dosage: OCCASIONAL CONSUMPTION REPORTED

REACTIONS (4)
  - Epilepsy [Recovered/Resolved]
  - Generalised tonic-clonic seizure [Recovered/Resolved]
  - Drug dependence [Recovering/Resolving]
  - Intentional product misuse [Recovered/Resolved]

NARRATIVE: CASE EVENT DATE: 20200101
